FAERS Safety Report 18461931 (Version 1)
Quarter: 2020Q4

REPORT INFORMATION
  Report Type: Spontaneous
  Country: ES (occurrence: ES)
  Receive Date: 20201104
  Receipt Date: 20201104
  Transmission Date: 20210114
  Serious: Yes (Other)
  Sender: FDA-Public Use
  Company Number: ES-AMGEN-ESPSP2020173776

PATIENT
  Age: 31 Year
  Sex: Female

DRUGS (4)
  1. ACFOL [Concomitant]
     Active Substance: FOLIC ACID
     Dosage: 5 MILLIGRAM, QWK
  2. METOTREXATE [Concomitant]
     Active Substance: METHOTREXATE SODIUM
     Route: 048
  3. DEFLAZACORT [Concomitant]
     Active Substance: DEFLAZACORT
     Dosage: 6 MILLIGRAM, QD
     Route: 048
  4. AMGEVITA [Suspect]
     Active Substance: ADALIMUMAB
     Indication: RHEUMATOID ARTHRITIS
     Dosage: 40 MILLIGRAM, Q2WK
     Route: 058
     Dates: start: 20190521, end: 20201001

REACTIONS (4)
  - Autoimmune demyelinating disease [Not Recovered/Not Resolved]
  - Dizziness [Not Recovered/Not Resolved]
  - Ataxia [Not Recovered/Not Resolved]
  - Headache [Not Recovered/Not Resolved]

NARRATIVE: CASE EVENT DATE: 20200904
